FAERS Safety Report 6868141-7 (Version None)
Quarter: 2010Q3

REPORT INFORMATION
  Report Type: 
  Country: None (occurrence: None)
  Receive Date: 20100722
  Receipt Date: 20080519
  Transmission Date: 20110219
  Serious: No
  Sender: FDA-Public Use
  Company Number: US-PFIZER INC-2008042801

PATIENT
  Sex: Female
  Weight: 56.7 kg

DRUGS (8)
  1. CHANTIX [Suspect]
     Dates: start: 20080509
  2. DRUG, UNSPECIFIED [Concomitant]
  3. LISINOPRIL [Concomitant]
  4. FUROSEMIDE [Concomitant]
  5. VITAMINS [Concomitant]
  6. DRUG, UNSPECIFIED [Concomitant]
     Indication: BLOOD POTASSIUM DECREASED
  7. FOSAMAX [Concomitant]
  8. AMLODIPINE BESYLATE [Concomitant]
     Indication: HYPERTENSION

REACTIONS (3)
  - DRUG DOSE OMISSION [None]
  - NAUSEA [None]
  - VOMITING [None]
